FAERS Safety Report 5918854-6 (Version None)
Quarter: 2008Q4

REPORT INFORMATION
  Report Type: 
  Country: None (occurrence: None)
  Receive Date: 20081015
  Receipt Date: 20081007
  Transmission Date: 20090506
  Serious: Yes (Hospitalization, Disabling, Other)
  Sender: FDA-Public Use
  Company Number: US-GILEAD-2008-0018460

PATIENT
  Sex: Female
  Weight: 59.6 kg

DRUGS (7)
  1. LETAIRIS [Suspect]
     Indication: PULMONARY ARTERIAL HYPERTENSION
     Route: 048
     Dates: start: 20080901
  2. LASIX [Concomitant]
  3. NIFEDIPINE [Concomitant]
  4. AMIODARONE [Concomitant]
  5. WARFARIN SODIUM [Concomitant]
  6. POTASSIUM CHLORIDE [Concomitant]
  7. ASPIRIN [Concomitant]

REACTIONS (2)
  - RIGHT VENTRICULAR FAILURE [None]
  - WEIGHT INCREASED [None]
